FAERS Safety Report 8536011-4 (Version None)
Quarter: 2012Q3

REPORT INFORMATION
  Report Type: 
  Country: None (occurrence: None)
  Receive Date: 20120725
  Receipt Date: 20120724
  Transmission Date: 20120928
  Serious: Yes (Death)
  Sender: FDA-Public Use
  Company Number: PHHY2012DE047438

PATIENT
  Sex: Male
  Weight: 98 kg

DRUGS (5)
  1. METOPROLOL TARTRATE [Concomitant]
     Indication: HYPERTENSION
     Dosage: 95 MG/DAY
     Route: 048
     Dates: start: 20070301, end: 20080509
  2. IMATINIB MESYLATE [Suspect]
     Indication: GASTROINTESTINAL STROMAL TUMOUR
     Dosage: 400 MG/DAY
     Route: 048
     Dates: start: 20070704, end: 20080509
  3. ALLOPURINOL [Concomitant]
     Indication: HYPERURICAEMIA
     Dosage: 300 MG/DAY
     Route: 048
     Dates: start: 20070301, end: 20080509
  4. PANTOPRAZOLE [Concomitant]
     Indication: PROPHYLAXIS
     Dosage: 40 MG/DAY
     Route: 048
     Dates: start: 20070301, end: 20080509
  5. RAMIPRIL [Concomitant]
     Indication: HYPERTENSION
     Dosage: 5 MG/DAY
     Route: 048
     Dates: start: 20070301, end: 20080509

REACTIONS (4)
  - EYELID OEDEMA [None]
  - COMPLETED SUICIDE [None]
  - DEPRESSION [None]
  - SUICIDAL IDEATION [None]
